FAERS Safety Report 6956368-5 (Version None)
Quarter: 2010Q3

REPORT INFORMATION
  Report Type: 
  Country: None (occurrence: None)
  Receive Date: 20100830
  Receipt Date: 20100823
  Transmission Date: 20110219
  Serious: Yes (Other)
  Sender: FDA-Public Use
  Company Number: A0877244A

PATIENT
  Age: 53 Year
  Sex: Female

DRUGS (7)
  1. LAMICTAL [Suspect]
     Indication: EPILEPSY
     Dosage: 25MG PER DAY
     Route: 048
     Dates: start: 20100818, end: 20100823
  2. PERCOCET [Concomitant]
  3. KEPPRA [Concomitant]
  4. EFFEXOR XR [Concomitant]
  5. SEROQUEL [Concomitant]
  6. XANAX [Concomitant]
  7. NEXIUM [Concomitant]

REACTIONS (9)
  - ANXIETY [None]
  - CONVULSION [None]
  - DRUG INEFFECTIVE [None]
  - EYE PAIN [None]
  - HEADACHE [None]
  - PAIN [None]
  - RASH [None]
  - SKIN ULCER [None]
  - TINNITUS [None]
